FAERS Safety Report 13099454 (Version 1)
Quarter: 2017Q1

REPORT INFORMATION
  Report Type: Spontaneous
  Country: BR (occurrence: BR)
  Receive Date: 20170109
  Receipt Date: 20170109
  Transmission Date: 20170428
  Serious: Yes (Other)
  Sender: FDA-Public Use
  Company Number: BR-AMGEN-BRASP2016184697

PATIENT
  Age: 40 Year
  Sex: Female

DRUGS (1)
  1. ENBREL [Suspect]
     Active Substance: ETANERCEPT
     Indication: JUVENILE IDIOPATHIC ARTHRITIS
     Dosage: 50 MG, UNK
     Route: 065
     Dates: start: 2015, end: 201609

REACTIONS (4)
  - Pain [Unknown]
  - Disease recurrence [Unknown]
  - Chikungunya virus infection [Unknown]
  - Inflammation [Unknown]

NARRATIVE: CASE EVENT DATE: 201606
